FAERS Safety Report 10404067 (Version 3)
Quarter: 2017Q2

REPORT INFORMATION
  Report Type: Spontaneous
  Country: FR (occurrence: FR)
  Receive Date: 20140823
  Receipt Date: 20170425
  Transmission Date: 20170829
  Serious: Yes (Death, Hospitalization)
  Sender: FDA-Public Use
  Company Number: FR-ACCORD-023521

PATIENT
  Age: 72 Year
  Sex: Female

DRUGS (2)
  1. DOCETAXEL ACCORD [Suspect]
     Active Substance: DOCETAXEL
     Indication: BREAST CANCER
     Dosage: 100 MG/M2 ONCE PER CYCLE
     Route: 042
     Dates: start: 20140306, end: 20140306
  2. GRANOCYTE [Suspect]
     Active Substance: LENOGRASTIM
     Indication: BREAST CANCER
     Route: 058
     Dates: start: 20140307, end: 20140311

REACTIONS (9)
  - Toxic epidermal necrolysis [Fatal]
  - Thrombocytopenia [Unknown]
  - Dysphonia [Unknown]
  - Oesophageal haemorrhage [Unknown]
  - Generalised erythema [Recovering/Resolving]
  - Oedema [Recovering/Resolving]
  - Febrile bone marrow aplasia [Recovered/Resolved]
  - Rectal haemorrhage [Recovered/Resolved]
  - Septic shock [Fatal]

NARRATIVE: CASE EVENT DATE: 20140307
